FAERS Safety Report 23523360 (Version 1)
Quarter: 2024Q1

REPORT INFORMATION
  Report Type: Spontaneous
  Country: US (occurrence: US)
  Receive Date: 20240214
  Receipt Date: 20240214
  Transmission Date: 20240410
  Serious: No
  Sender: FDA-Public Use
  Company Number: US-BIOVITRUM-2024-US-002228

PATIENT
  Age: 13 Month
  Sex: Male
  Weight: 8.073 kg

DRUGS (1)
  1. SYNAGIS [Suspect]
     Active Substance: PALIVIZUMAB
     Indication: Ventricular septal defect
     Dosage: 15MG/KG MONTHLY
     Route: 030

REACTIONS (1)
  - Rhinorrhoea [Unknown]
